FAERS Safety Report 17268828 (Version 1)
Quarter: 2019Q4

REPORT INFORMATION
  Report Type: Spontaneous
  Country: US (occurrence: US)
  Receive Date: 20191223
  Receipt Date: 20191223
  Transmission Date: 20200122
  Serious: Yes (Hospitalization)
  Sender: FDA-Public Use
  Company Number: None

PATIENT
  Age: 57 Year
  Sex: Female

DRUGS (1)
  1. SILDENAFIL 20MG TAB [Suspect]
     Active Substance: SILDENAFIL
     Indication: PULMONARY ARTERIAL HYPERTENSION
     Dosage: ?          OTHER FREQUENCY:1TAB3XDAILY;?
     Route: 048
     Dates: start: 20190314

REACTIONS (2)
  - Pneumonia [None]
  - Therapy cessation [None]

NARRATIVE: CASE EVENT DATE: 20190909
